FAERS Safety Report 5912127-3 (Version None)
Quarter: 2008Q4

REPORT INFORMATION
  Report Type: 
  Country: None (occurrence: None)
  Receive Date: 20081007
  Receipt Date: 20081007
  Transmission Date: 20090506
  Serious: Yes (Hospitalization)
  Sender: FDA-Public Use
  Company Number: None

PATIENT
  Sex: Male
  Weight: 90.9008 kg

DRUGS (30)
  1. FLUDARABINE PHOSPHATE [Suspect]
  2. MELPHALAN [Suspect]
  3. SODIUM CHLORIDE INJ [Concomitant]
  4. ZOLPIDEM [Concomitant]
  5. OXYCODONE HCL [Concomitant]
  6. LEVOTHYROXINE SODIUM [Concomitant]
  7. DIPHENHYDRAMINE HCL [Concomitant]
  8. METHOTREXATE [Concomitant]
  9. ALBUTEROL [Concomitant]
  10. FLUTICASONE/ SALMETOL 115-21 [Concomitant]
  11. CARVEDILOL [Concomitant]
  12. PROCHLORPERAZINE [Concomitant]
  13. PIPERACILLIN/TAX (ZOSYN) [Concomitant]
  14. CLOTRIMAZOLE [Concomitant]
  15. NYSTATIN ORAL SOLN [Concomitant]
  16. PROMETHAZINE [Concomitant]
  17. METHYLPREDNISOLONE SOD SUCC [Concomitant]
  18. LACTULOSE [Concomitant]
  19. NEUPOGEN [Concomitant]
  20. MYCOPHENOLATE (CELLCEPT) [Concomitant]
  21. HYDROMORPHONE HCL [Concomitant]
  22. ESOMEPRAZOLE MAGNESIUM [Concomitant]
  23. ONDANSETRON [Concomitant]
  24. PRIMASATE 4K-2.5CA [Concomitant]
  25. CALCIUM CHLORIDE [Concomitant]
  26. SODIUM PHOSPHATE [Concomitant]
  27. MAGNESIUM SULFATE [Concomitant]
  28. POTASSIUM CL (K RIDER) [Concomitant]
  29. CALCIUM ACETATE [Concomitant]
  30. NYSTATIN [Concomitant]

REACTIONS (8)
  - HAEMODIALYSIS [None]
  - HEPATOMEGALY [None]
  - LIVER FUNCTION TEST ABNORMAL [None]
  - OEDEMA PERIPHERAL [None]
  - PULMONARY HYPERTENSION [None]
  - RENAL FAILURE ACUTE [None]
  - SLEEP APNOEA SYNDROME [None]
  - VENTRICULAR DYSFUNCTION [None]
